FAERS Safety Report 9458846 (Version 2)
Quarter: 2013Q3

REPORT INFORMATION
  Report Type: Spontaneous
  Country: US (occurrence: None)
  Receive Date: 20130812
  Receipt Date: 20130827
  Transmission Date: 20140515
  Serious: Yes (Other)
  Sender: FDA-Public Use
  Company Number: 2013GMK006438

PATIENT
  Age: 28 Year
  Sex: Female

DRUGS (2)
  1. VIORELE [Suspect]
     Indication: PRODUCT USED FOR UNKNOWN INDICATION
     Dosage: 1 DF
     Route: 048
  2. VIORELE [Suspect]
     Indication: CONTRACEPTION
     Dosage: 1 DF
     Route: 048

REACTIONS (4)
  - Transient ischaemic attack [None]
  - Muscle disorder [None]
  - Photosensitivity reaction [None]
  - Pain [None]
